FAERS Safety Report 8772156 (Version 2)
Quarter: 2015Q2

REPORT INFORMATION
  Report Type: Report from Study
  Country: US (occurrence: US)
  Receive Date: 20120905
  Receipt Date: 20150630
  Transmission Date: 20150821
  Serious: Yes (Other)
  Sender: FDA-Public Use
  Company Number: US-ROCHE-CID000000002112099

PATIENT
  Sex: Male

DRUGS (19)
  1. TAXOTERE [Concomitant]
     Active Substance: DOCETAXEL
     Dosage: 1 ON DAY 1
     Route: 065
     Dates: start: 20051201
  2. AVASTIN [Suspect]
     Active Substance: BEVACIZUMAB
     Route: 042
     Dates: start: 20060105
  3. TAXOTERE [Concomitant]
     Active Substance: DOCETAXEL
     Dosage: 1 ON DAY 1
     Route: 065
     Dates: start: 20051214
  4. PROCRIT [Concomitant]
     Active Substance: ERYTHROPOIETIN
     Dosage: 1 ON DAY 1
     Route: 058
     Dates: start: 20051214
  5. ALOXI [Concomitant]
     Active Substance: PALONOSETRON HYDROCHLORIDE
     Route: 042
     Dates: start: 20060105
  6. DEXAMETHASONE. [Concomitant]
     Active Substance: DEXAMETHASONE
     Dosage: 1 ON DAY 1
     Route: 065
  7. TAXOTERE [Concomitant]
     Active Substance: DOCETAXEL
     Dosage: 1 ON DAY 1
     Route: 065
     Dates: start: 20050105
  8. ALOXI [Concomitant]
     Active Substance: PALONOSETRON HYDROCHLORIDE
     Dosage: 1 ON DAY 1
     Route: 042
     Dates: start: 20051118
  9. AVASTIN [Suspect]
     Active Substance: BEVACIZUMAB
     Indication: MALIGNANT RESPIRATORY TRACT NEOPLASM
     Dosage: 1 ON DAY 1
     Route: 042
     Dates: start: 20051201
  10. TARCEVA [Suspect]
     Active Substance: ERLOTINIB HYDROCHLORIDE
     Indication: MALIGNANT RESPIRATORY TRACT NEOPLASM
     Route: 065
     Dates: start: 20051201
  11. TARCEVA [Suspect]
     Active Substance: ERLOTINIB HYDROCHLORIDE
     Route: 065
     Dates: start: 20051214
  12. TAXOTERE [Concomitant]
     Active Substance: DOCETAXEL
     Dosage: 1 ON DAY 1
     Route: 065
     Dates: start: 20050118
  13. PROCRIT [Concomitant]
     Active Substance: ERYTHROPOIETIN
     Dosage: 1 ON DAY 1
     Route: 058
     Dates: start: 20060105
  14. ALOXI [Concomitant]
     Active Substance: PALONOSETRON HYDROCHLORIDE
     Route: 042
     Dates: start: 20051201
  15. ALOXI [Concomitant]
     Active Substance: PALONOSETRON HYDROCHLORIDE
     Dosage: 1 ON DAY 1
     Route: 042
     Dates: start: 20060108
  16. ARANESP [Concomitant]
     Active Substance: DARBEPOETIN ALFA
     Route: 042
  17. AVASTIN [Suspect]
     Active Substance: BEVACIZUMAB
     Route: 042
     Dates: start: 20051214
  18. PROCRIT [Concomitant]
     Active Substance: ERYTHROPOIETIN
     Route: 058
     Dates: start: 20060118
  19. ALOXI [Concomitant]
     Active Substance: PALONOSETRON HYDROCHLORIDE
     Dosage: 1 ON DAY 1
     Route: 042
     Dates: start: 20051214

REACTIONS (8)
  - Rash [Unknown]
  - Off label use [Unknown]
  - Weight decreased [Unknown]
  - Oral disorder [Unknown]
  - Disease progression [Unknown]
  - Dermatitis acneiform [Unknown]
  - Ageusia [Unknown]
  - Swollen tongue [Unknown]
